FAERS Safety Report 21269438 (Version 2)
Quarter: 2022Q3

REPORT INFORMATION
  Report Type: Report from Study
  Country: CA (occurrence: CA)
  Receive Date: 20220830
  Receipt Date: 20220902
  Transmission Date: 20221027
  Serious: Yes (Other)
  Sender: FDA-Public Use
  Company Number: CA-NOVARTISPH-NVSC2022CA159689

PATIENT
  Age: 53 Year
  Sex: Male

DRUGS (12)
  1. MOMETASONE [Suspect]
     Active Substance: MOMETASONE
     Indication: Nasal polyps
     Dosage: (DOSE: 2 X 30MCG (UG)), BID
     Route: 065
     Dates: start: 2002
  2. PREDNISONE [Concomitant]
     Active Substance: PREDNISONE
     Indication: Ear disorder
     Dosage: 1 DOSAGE FORM, QD
     Route: 048
     Dates: start: 20220526, end: 20220602
  3. FLUTICASONE [Concomitant]
     Active Substance: FLUTICASONE
     Indication: Product used for unknown indication
     Dosage: 1 DOSAGE FORM, QD
     Dates: start: 2020
  4. SINGULAIR [Concomitant]
     Active Substance: MONTELUKAST SODIUM
     Indication: Product used for unknown indication
     Dosage: UNK, QD (IN 2022)
     Route: 048
  5. SPIRIVA [Concomitant]
     Active Substance: TIOTROPIUM BROMIDE MONOHYDRATE
     Indication: Product used for unknown indication
     Dosage: 2 DOSAGE FORM (IN 2022)
  6. VENTOLIN [Concomitant]
     Active Substance: ALBUTEROL SULFATE
     Indication: Product used for unknown indication
     Dosage: 2 DOSAGE FORM, PRN
     Dates: start: 1982
  7. RUPATADINE FUMARATE [Concomitant]
     Active Substance: RUPATADINE FUMARATE
     Indication: Product used for unknown indication
     Dosage: 1 DOSAGE FORM, QD
     Route: 048
     Dates: start: 2020
  8. FLOVENT [Concomitant]
     Active Substance: FLUTICASONE PROPIONATE
     Indication: Product used for unknown indication
     Dosage: 1 DOSAGE FORM, QD
     Dates: start: 2007, end: 2020
  9. FLOVENT [Concomitant]
     Active Substance: FLUTICASONE PROPIONATE
     Dosage: 1 INHALATION TWICE A DAY
  10. BECLOVENT [Concomitant]
     Active Substance: BECLOMETHASONE DIPROPIONATE
     Indication: Product used for unknown indication
     Dosage: UNK (UG)
     Dates: start: 1980, end: 2002
  11. TRIAMTERENE [Concomitant]
     Active Substance: TRIAMTERENE
     Indication: Product used for unknown indication
     Dosage: UNK
     Route: 065
  12. TRICHLORMETHIAZIDE [Concomitant]
     Active Substance: TRICHLORMETHIAZIDE
     Indication: Product used for unknown indication
     Dosage: UNK
     Route: 065

REACTIONS (48)
  - Deafness [Unknown]
  - Diaphragm muscle weakness [Recovering/Resolving]
  - Productive cough [Unknown]
  - Middle insomnia [Unknown]
  - Mean cell haemoglobin increased [Unknown]
  - Blood immunoglobulin E increased [Unknown]
  - Musculoskeletal stiffness [Unknown]
  - Nasal congestion [Unknown]
  - Asthma [Unknown]
  - Throat clearing [Unknown]
  - Asthma exercise induced [Unknown]
  - Respiratory tract infection [Unknown]
  - Dust allergy [Unknown]
  - Mite allergy [Unknown]
  - Allergy to animal [Unknown]
  - Myalgia [Unknown]
  - Diaphragmatic disorder [Not Recovered/Not Resolved]
  - Influenza like illness [Unknown]
  - Urticaria [Unknown]
  - Allergy to arthropod sting [Unknown]
  - Drug hypersensitivity [Unknown]
  - Mycotic allergy [Unknown]
  - Seasonal allergy [Unknown]
  - Cough [Unknown]
  - Food allergy [Unknown]
  - Perennial allergy [Unknown]
  - Allergic respiratory disease [Unknown]
  - Nasal disorder [Unknown]
  - Chest discomfort [Unknown]
  - Wheezing [Unknown]
  - Skin test positive [Unknown]
  - Forced expiratory volume abnormal [Unknown]
  - Insomnia [Unknown]
  - General physical health deterioration [Unknown]
  - Hypocalcaemia [Unknown]
  - Hyponatraemia [Unknown]
  - Upper-airway cough syndrome [Unknown]
  - Alanine aminotransferase increased [Unknown]
  - Sputum retention [Unknown]
  - Arthralgia [Unknown]
  - Weight increased [Unknown]
  - Tachycardia [Unknown]
  - Tremor [Unknown]
  - Blood potassium decreased [Unknown]
  - Calcium ionised decreased [Unknown]
  - Complement factor decreased [Unknown]
  - Dyspnoea [Unknown]
  - Hypersensitivity [Unknown]

NARRATIVE: CASE EVENT DATE: 20220606
